FAERS Safety Report 7497065-X (Version None)
Quarter: 2011Q2

REPORT INFORMATION
  Report Type: 
  Country: None (occurrence: None)
  Receive Date: 20110523
  Receipt Date: 20110513
  Transmission Date: 20111010
  Serious: Yes (Death, Life-Threatening, Other)
  Sender: FDA-Public Use
  Company Number: JP-CELGENEUS-087-21880-10102192

PATIENT
  Sex: Male
  Weight: 58 kg

DRUGS (21)
  1. REVLIMID [Suspect]
     Indication: MULTIPLE MYELOMA
     Dosage: 10 MILLIGRAM
     Route: 048
     Dates: start: 20100830, end: 20100919
  2. REVLIMID [Suspect]
     Dosage: 15 MILLIGRAM
     Route: 048
     Dates: start: 20101130, end: 20101213
  3. DEXAMETHASONE [Suspect]
     Dosage: 40 MILLIGRAM
     Route: 048
     Dates: start: 20100907, end: 20100910
  4. DEXAMETHASONE [Suspect]
     Dosage: 40 MILLIGRAM
     Route: 048
     Dates: start: 20100915, end: 20100918
  5. VITAMEDIN [Concomitant]
     Dosage: 2 CAPSULE
     Route: 048
     Dates: start: 20100830, end: 20110112
  6. ASPIRIN [Concomitant]
     Indication: CEREBRAL INFARCTION
     Dosage: 100 MILLIGRAM
     Route: 048
     Dates: start: 20100202, end: 20110112
  7. ASTRIC [Concomitant]
     Indication: PROPHYLAXIS
     Dosage: 200 MILLIGRAM
     Route: 048
     Dates: start: 20100830, end: 20110112
  8. DEXAMETHASONE [Suspect]
     Indication: MULTIPLE MYELOMA
     Dosage: 40 MILLIGRAM
     Route: 048
     Dates: start: 20100830, end: 20100902
  9. REVLIMID [Suspect]
     Dosage: 15 MILLIGRAM
     Route: 048
     Dates: start: 20101102, end: 20101115
  10. REVLIMID [Suspect]
     Dosage: 15 MILLIGRAM
     Route: 048
     Dates: start: 20110111, end: 20110112
  11. DEXAMETHASONE [Suspect]
     Dosage: 4 MILLIGRAM
     Route: 048
     Dates: start: 20101130, end: 20101213
  12. ULCERLMIN [Concomitant]
     Indication: PROPHYLAXIS
     Dosage: 2 GRAM
     Route: 048
     Dates: start: 20100830, end: 20110112
  13. CANDESARTAN CILEXETIL [Concomitant]
     Indication: HYPERTENSION
     Dosage: 8 MILLIGRAM
     Route: 048
     Dates: start: 20100202
  14. REVLIMID [Suspect]
     Dosage: 15 MILLIGRAM
     Route: 048
     Dates: start: 20100930, end: 20101020
  15. DEXAMETHASONE [Suspect]
     Dosage: 4 MILLIGRAM
     Route: 048
     Dates: start: 20110111, end: 20110112
  16. AZULENE GLUTAMINE [Concomitant]
     Indication: PROPHYLAXIS
     Dosage: 1.3 GRAM
     Route: 048
     Dates: start: 20100830, end: 20110112
  17. DEXAMETHASONE [Suspect]
     Dosage: 4 MILLIGRAM
     Route: 048
     Dates: start: 20101102, end: 20101115
  18. LIPITOR [Concomitant]
     Dosage: 10 MILLIGRAM
     Route: 048
     Dates: start: 20100202
  19. DEXAMETHASONE [Suspect]
     Dosage: 40 MILLIGRAM
     Route: 048
     Dates: start: 20101001, end: 20101022
  20. LANSOPRAZOLE [Concomitant]
     Indication: PROPHYLAXIS
     Dosage: 15 MILLIGRAM
     Route: 048
     Dates: start: 20100830, end: 20110112
  21. SULFAMETHOXAZOLE [Concomitant]
     Indication: PROPHYLAXIS
     Dosage: 1 TABLET
     Route: 048
     Dates: start: 20101014, end: 20110112

REACTIONS (6)
  - CARDIAC FAILURE [None]
  - NEUTROPHIL COUNT DECREASED [None]
  - SICK SINUS SYNDROME [None]
  - PLATELET COUNT DECREASED [None]
  - LEUKOPENIA [None]
  - RENAL FAILURE [None]
